FAERS Safety Report 8162558-9 (Version None)
Quarter: 2012Q1

REPORT INFORMATION
  Report Type: 
  Country: None (occurrence: None)
  Receive Date: 20120224
  Receipt Date: 20110614
  Transmission Date: 20120608
  Serious: No
  Sender: FDA-Public Use
  Company Number: US-PFIZER INC-K201100714

PATIENT

DRUGS (10)
  1. ZOCOR [Suspect]
     Dosage: UNK
     Dates: end: 20110101
  2. LANTUS [Suspect]
     Dosage: UNK
     Route: 058
     Dates: end: 20110101
  3. WARFARIN SODIUM [Suspect]
     Dosage: UNK
     Dates: end: 20110101
  4. ALTACE [Suspect]
     Dosage: UNK
     Dates: start: 20110101
  5. WARFARIN SODIUM [Suspect]
     Dosage: UNK
     Dates: start: 20110101
  6. ALTACE [Suspect]
     Dosage: UNK
     Route: 048
     Dates: end: 20110101
  7. COREG [Suspect]
     Dosage: UNK
     Dates: start: 20110101
  8. ZOCOR [Suspect]
     Dosage: UNK
     Dates: start: 20110101
  9. COREG [Suspect]
     Dosage: UNK
     Dates: end: 20110101
  10. LANTUS [Suspect]
     Dosage: UNK
     Route: 058
     Dates: start: 20110101

REACTIONS (3)
  - ASTHENIA [None]
  - DYSPNOEA [None]
  - DIZZINESS [None]
